FAERS Safety Report 6760624-3 (Version None)
Quarter: 2010Q2

REPORT INFORMATION
  Report Type: 
  Country: None (occurrence: None)
  Receive Date: 20100608
  Receipt Date: 20100527
  Transmission Date: 20101027
  Serious: Yes (Other)
  Sender: FDA-Public Use
  Company Number: US-PFIZER INC-2010067345

PATIENT
  Sex: Male
  Weight: 74.83 kg

DRUGS (1)
  1. LIPITOR [Suspect]
     Indication: BLOOD CHOLESTEROL INCREASED
     Dosage: DAILY
     Route: 048
     Dates: start: 20090101, end: 20091201

REACTIONS (5)
  - ASTHENIA [None]
  - GAIT DISTURBANCE [None]
  - MENISCUS REMOVAL [None]
  - MUSCLE ATROPHY [None]
  - WEIGHT DECREASED [None]
